FAERS Safety Report 8996777 (Version 1)
Quarter: 2013Q1

REPORT INFORMATION
  Report Type: Spontaneous
  Country: US (occurrence: US)
  Receive Date: 20130104
  Receipt Date: 20130104
  Transmission Date: 20140127
  Serious: Yes (Other)
  Sender: FDA-Public Use
  Company Number: US-JNJFOC-20130100132

PATIENT
  Sex: 0

DRUGS (1)
  1. REOPRO [Suspect]
     Indication: PRODUCT USED FOR UNKNOWN INDICATION
     Dosage: 2MG/ML
     Route: 042
     Dates: start: 20121231, end: 20121231

REACTIONS (1)
  - Extravasation [Unknown]
